FAERS Safety Report 24008486 (Version 1)
Quarter: 2024Q2

REPORT INFORMATION
  Report Type: Spontaneous
  Country: US (occurrence: US)
  Receive Date: 20240625
  Receipt Date: 20240625
  Transmission Date: 20240716
  Serious: No
  Sender: FDA-Public Use
  Company Number: US-BANNER LIFE SCIENCES-USBAN23000254

PATIENT

DRUGS (1)
  1. BAFIERTAM [Suspect]
     Active Substance: MONOMETHYL FUMARATE
     Indication: Multiple sclerosis
     Dosage: UNK, UNK
     Route: 065
     Dates: start: 2023, end: 202312

REACTIONS (5)
  - Diplopia [Unknown]
  - Constipation [Unknown]
  - Hemiparesis [Unknown]
  - Dizziness [Unknown]
  - Incorrect dose administered [Unknown]
